FAERS Safety Report 20144291 (Version 1)
Quarter: 2021Q4

REPORT INFORMATION
  Report Type: Spontaneous
  Country: US (occurrence: US)
  Receive Date: 20211203
  Receipt Date: 20211203
  Transmission Date: 20220304
  Serious: Yes (Death, Other)
  Sender: FDA-Public Use
  Company Number: US-ASTELLAS-2021US046042

PATIENT
  Age: 65 Year
  Sex: Female

DRUGS (2)
  1. TACROLIMUS [Suspect]
     Active Substance: TACROLIMUS
     Indication: Autoimmune hepatitis
     Dosage: UNK UNK, UNKNOWN FREQ.
     Route: 065
  2. TACROLIMUS [Suspect]
     Active Substance: TACROLIMUS
     Indication: Hepatic cirrhosis

REACTIONS (5)
  - Hepatic failure [Fatal]
  - Peripheral T-cell lymphoma unspecified [Fatal]
  - Lymphoma [Fatal]
  - Product use in unapproved indication [Unknown]
  - Off label use [Unknown]
